FAERS Safety Report 7540812-9 (Version None)
Quarter: 2011Q2

REPORT INFORMATION
  Report Type: 
  Country: None (occurrence: None)
  Receive Date: 20110610
  Receipt Date: 20110601
  Transmission Date: 20111010
  Serious: Yes (Hospitalization, Other)
  Sender: FDA-Public Use
  Company Number: JP-ROCHE-781287

PATIENT
  Age: 61 Year
  Sex: Female

DRUGS (1)
  1. ACTEMRA [Suspect]
     Indication: RHEUMATOID ARTHRITIS
     Dosage: DOSAGE IS UNCERTAIN
     Route: 041

REACTIONS (5)
  - HYDRONEPHROSIS [None]
  - IMPAIRED HEALING [None]
  - NEPHROLITHIASIS [None]
  - PERINEPHRIC ABSCESS [None]
  - SEPTIC SHOCK [None]
